FAERS Safety Report 15569429 (Version 1)
Quarter: 2018Q4

REPORT INFORMATION
  Report Type: Spontaneous
  Country: NL (occurrence: NL)
  Receive Date: 20181031
  Receipt Date: 20181031
  Transmission Date: 20190205
  Serious: Yes (Hospitalization, Other)
  Sender: FDA-Public Use
  Company Number: NL-ABBVIE-18S-114-2536961-00

PATIENT
  Sex: Female

DRUGS (2)
  1. FEVARIN [Suspect]
     Active Substance: FLUVOXAMINE MALEATE
     Indication: MATERNAL EXPOSURE TIMING UNSPECIFIED
     Dosage: 100 MG, BID,(2DD1)
     Route: 064
  2. NORTRILEN [Suspect]
     Active Substance: NORTRIPTYLINE
     Indication: MATERNAL EXPOSURE TIMING UNSPECIFIED
     Dosage: 2DD1
     Route: 064

REACTIONS (5)
  - Poor feeding infant [Recovered/Resolved]
  - Hypoglycaemia neonatal [Recovered/Resolved]
  - Hair disorder [Recovered/Resolved]
  - Neonatal tachycardia [Recovered/Resolved]
  - Foetal exposure during pregnancy [Unknown]
